FAERS Safety Report 7437260-9 (Version None)
Quarter: 2011Q2

REPORT INFORMATION
  Report Type: 
  Country: None (occurrence: None)
  Receive Date: 20110426
  Receipt Date: 20110418
  Transmission Date: 20111010
  Serious: Yes (Death, Other)
  Sender: FDA-Public Use
  Company Number: BR-BRISTOL-MYERS SQUIBB COMPANY-15689631

PATIENT
  Sex: Male

DRUGS (2)
  1. PLAVIX [Concomitant]
  2. IRBESARTAN [Suspect]
     Dates: start: 19960101

REACTIONS (2)
  - DIABETES MELLITUS [None]
  - LEUKAEMIA [None]
